FAERS Safety Report 7640530-2 (Version None)
Quarter: 2011Q3

REPORT INFORMATION
  Report Type: 
  Country: None (occurrence: None)
  Receive Date: 20110728
  Receipt Date: 20110719
  Transmission Date: 20111222
  Serious: No
  Sender: FDA-Public Use
  Company Number: US-BIOGENIDEC-2011BI027045

PATIENT
  Sex: Female

DRUGS (3)
  1. TYSABRI [Suspect]
     Indication: MULTIPLE SCLEROSIS
     Route: 042
     Dates: start: 20070316
  2. TYSABRI [Suspect]
     Route: 042
     Dates: end: 20101101
  3. TYSABRI [Suspect]
     Route: 042
     Dates: start: 20110301

REACTIONS (3)
  - HYPERSENSITIVITY [None]
  - PERONEAL NERVE PALSY [None]
  - MULTIPLE SCLEROSIS [None]
